FAERS Safety Report 7746226-0 (Version None)
Quarter: 2011Q3

REPORT INFORMATION
  Report Type: 
  Country: None (occurrence: None)
  Receive Date: 20110913
  Receipt Date: 20110906
  Transmission Date: 20111222
  Serious: Yes (Death, Life-Threatening, Hospitalization)
  Sender: FDA-Public Use
  Company Number: JP-JNJFOC-20110800082

PATIENT
  Sex: Female
  Weight: 46 kg

DRUGS (90)
  1. DOXORUBICIN HCL [Suspect]
     Route: 042
     Dates: start: 20100604, end: 20100604
  2. DOXORUBICIN HCL [Suspect]
     Route: 042
     Dates: start: 20100106, end: 20100106
  3. SOLDEM 1 [Concomitant]
     Route: 042
     Dates: start: 20100601, end: 20100603
  4. KYTRIL [Concomitant]
     Route: 042
     Dates: start: 20100106, end: 20100106
  5. TPN ELECTROLYTES IN PLASTIC CONTAINER [Concomitant]
     Route: 042
     Dates: end: 20100714
  6. TPN ELECTROLYTES IN PLASTIC CONTAINER [Concomitant]
     Route: 042
     Dates: start: 20100529, end: 20100601
  7. TPN ELECTROLYTES IN PLASTIC CONTAINER [Concomitant]
     Route: 042
     Dates: start: 20091116
  8. MEROPENEM [Concomitant]
     Route: 042
     Dates: start: 20091117, end: 20091124
  9. SODIUM BICARBONATE [Concomitant]
     Route: 049
     Dates: start: 20091123, end: 20100507
  10. ASPIRIN [Concomitant]
     Route: 048
     Dates: start: 20091210, end: 20100622
  11. RINDERON-VG [Concomitant]
     Route: 061
     Dates: start: 20100106, end: 20100106
  12. SOLITA-T NO.4 [Concomitant]
     Route: 042
     Dates: start: 20100129, end: 20100129
  13. AZUNOL ST [Concomitant]
     Route: 048
     Dates: start: 20100507, end: 20100610
  14. POTASSIUM CHLORIDE [Concomitant]
     Route: 042
     Dates: start: 20100529, end: 20100601
  15. DOXORUBICIN HCL [Suspect]
     Indication: OVARIAN CANCER RECURRENT
     Route: 042
     Dates: start: 20100507, end: 20100507
  16. DOXORUBICIN HCL [Suspect]
     Route: 042
     Dates: start: 20091209, end: 20091209
  17. SENNOSIDE [Concomitant]
     Route: 048
     Dates: end: 20100616
  18. ARGAMATE [Concomitant]
     Indication: HYDRONEPHROSIS
     Route: 048
  19. SOLDEM 1 [Concomitant]
     Route: 042
     Dates: start: 20100129, end: 20100129
  20. ISOTONIC SODIUM CHLORIDE [Concomitant]
     Route: 042
     Dates: start: 20100106, end: 20100106
  21. ISOTONIC SODIUM CHLORIDE [Concomitant]
     Route: 042
     Dates: start: 20100106, end: 20100106
  22. DEXAMETHASONE SODIUM PHOSPHATE [Concomitant]
     Route: 042
  23. KYTRIL [Concomitant]
     Route: 042
  24. SODIUM CHLORIDE [Concomitant]
     Route: 042
     Dates: start: 20091117, end: 20091117
  25. HERBAL PREPARATION [Concomitant]
     Route: 048
     Dates: start: 20091117, end: 20091118
  26. NAPROXEN [Concomitant]
     Route: 048
     Dates: start: 20091122, end: 20100116
  27. DOXORUBICIN HCL [Suspect]
     Route: 042
     Dates: start: 20100312, end: 20100312
  28. SENNOSIDE [Concomitant]
     Route: 048
     Dates: end: 20100722
  29. ISOTONIC SODIUM CHLORIDE [Concomitant]
     Route: 042
     Dates: start: 20100507, end: 20100507
  30. DEXAMETHASONE SODIUM PHOSPHATE [Concomitant]
     Route: 042
     Dates: start: 20100507, end: 20100507
  31. PRIMPERAN TAB [Concomitant]
     Route: 042
     Dates: start: 20091116
  32. LECICARBON [Concomitant]
     Indication: CONSTIPATION
     Route: 054
     Dates: start: 20100106, end: 20100116
  33. SOLITA-T NO.4 [Concomitant]
     Route: 042
     Dates: start: 20100213, end: 20100215
  34. PANTHENOL [Concomitant]
     Route: 042
     Dates: start: 20100129, end: 20100129
  35. CEFMETAZON [Concomitant]
     Route: 042
     Dates: start: 20100530, end: 20100607
  36. FENTANYL CITRATE [Concomitant]
     Route: 062
     Dates: end: 20100618
  37. PHYSIOSOL [Concomitant]
     Route: 042
     Dates: start: 20091116
  38. MAGMITT [Concomitant]
     Route: 048
     Dates: end: 20100116
  39. SOLDEM 1 [Concomitant]
     Route: 042
     Dates: start: 20100720, end: 20100725
  40. SOLDEM 1 [Concomitant]
     Route: 042
     Dates: start: 20100130, end: 20100130
  41. DEXAMETHASONE SODIUM PHOSPHATE [Concomitant]
     Route: 042
  42. PRIMPERAN TAB [Concomitant]
     Route: 042
     Dates: start: 20100129, end: 20100129
  43. DAI-KENCHU-TO [Concomitant]
     Indication: CONSTIPATION
     Route: 048
     Dates: start: 20091210, end: 20100116
  44. PANTHENOL [Concomitant]
     Route: 042
     Dates: end: 20100714
  45. KENALOG [Concomitant]
     Route: 049
     Dates: start: 20100508, end: 20100508
  46. MARZULENE-S [Concomitant]
     Route: 048
     Dates: start: 20100621, end: 20100627
  47. DOXORUBICIN HCL [Suspect]
     Route: 042
     Dates: start: 20100212, end: 20100212
  48. DOXORUBICIN HCL [Suspect]
     Route: 042
     Dates: start: 20100409, end: 20100409
  49. FENTANYL CITRATE [Concomitant]
     Route: 062
     Dates: start: 20100703, end: 20100729
  50. HERBAL NERVE TONIC LIQUID [Concomitant]
     Route: 048
  51. ISOTONIC SODIUM CHLORIDE [Concomitant]
     Route: 042
  52. ISOTONIC SODIUM CHLORIDE [Concomitant]
     Route: 042
     Dates: end: 20100706
  53. WARFARIN SODIUM [Concomitant]
     Indication: DEEP VEIN THROMBOSIS
     Route: 048
     Dates: start: 20091112
  54. MAC-AMIN [Concomitant]
     Route: 042
     Dates: start: 20091116
  55. TPN ELECTROLYTES IN PLASTIC CONTAINER [Concomitant]
     Route: 042
     Dates: start: 20100602, end: 20100602
  56. CEFAZOLIN SODIUM [Concomitant]
     Indication: CONSTIPATION
     Route: 048
     Dates: start: 20091117, end: 20091120
  57. KALIMATE [Concomitant]
     Route: 048
     Dates: start: 20091126
  58. CINAL [Concomitant]
     Route: 048
     Dates: end: 20100116
  59. EPHEDRA TEAS [Concomitant]
     Route: 048
     Dates: start: 20091218, end: 20100112
  60. ASPIRIN [Concomitant]
     Indication: DEEP VEIN THROMBOSIS
     Route: 048
     Dates: end: 20100722
  61. FERROUS CITRATE [Concomitant]
     Route: 048
     Dates: start: 20100106, end: 20100116
  62. ZOLPIDEM [Concomitant]
     Route: 048
     Dates: start: 20100507, end: 20100605
  63. MAGMITT [Concomitant]
     Indication: CONSTIPATION
     Route: 048
     Dates: end: 20100621
  64. NOVO HEPARIN [Concomitant]
     Indication: DEEP VEIN THROMBOSIS
     Route: 042
  65. ISOTONIC SODIUM CHLORIDE [Concomitant]
     Route: 042
     Dates: start: 20100507, end: 20100507
  66. DEXTROSE [Concomitant]
     Route: 042
     Dates: start: 20100106, end: 20100106
  67. DEXAMETHASONE SODIUM PHOSPHATE [Concomitant]
     Route: 042
     Dates: start: 20100106, end: 20100106
  68. TPN ELECTROLYTES IN PLASTIC CONTAINER [Concomitant]
     Route: 042
     Dates: start: 20100706, end: 20100728
  69. MEROPENEM [Concomitant]
     Route: 042
     Dates: start: 20091116, end: 20091116
  70. FUNGIZONE [Concomitant]
     Route: 042
     Dates: start: 20091116, end: 20091119
  71. OXINORM [Concomitant]
     Route: 048
     Dates: start: 20091126, end: 20100106
  72. ASPIRIN [Concomitant]
     Route: 048
     Dates: start: 20100106, end: 20100116
  73. ATARAX [Concomitant]
     Route: 042
     Dates: start: 20100129, end: 20100129
  74. SOLITA-T NO.4 [Concomitant]
     Route: 042
     Dates: start: 20100130, end: 20100212
  75. CEFMETAZON [Concomitant]
     Route: 042
     Dates: end: 20100706
  76. MAGMITT [Concomitant]
     Route: 048
  77. SOLDEM 1 [Concomitant]
     Route: 042
     Dates: start: 20100706, end: 20100708
  78. NERIPROCT [Concomitant]
     Indication: HAEMORRHOIDS
     Route: 061
  79. DEXTROSE [Concomitant]
     Route: 042
  80. PENTAZOCINE LACTATE [Concomitant]
     Route: 042
     Dates: start: 20100129, end: 20100129
  81. TPN [Concomitant]
     Route: 048
     Dates: start: 20100528, end: 20100704
  82. DOXORUBICIN HCL [Suspect]
     Route: 042
     Dates: start: 20091110, end: 20091110
  83. SENNOSIDE [Concomitant]
     Indication: CONSTIPATION
     Route: 048
     Dates: start: 20091027, end: 20100116
  84. VITAMEDIN [Concomitant]
     Route: 042
     Dates: start: 20091116
  85. SOLDEM 1 [Concomitant]
     Route: 042
  86. DEXTROSE [Concomitant]
     Route: 042
     Dates: start: 20100507, end: 20100507
  87. KYTRIL [Concomitant]
     Route: 042
     Dates: start: 20100507, end: 20100507
  88. KAKKON-TO [Concomitant]
     Route: 048
     Dates: start: 20091116, end: 20091116
  89. CINAL [Concomitant]
     Route: 048
     Dates: start: 20091218
  90. DAI-KENCHU-TO [Concomitant]
     Route: 048
     Dates: end: 20100722

REACTIONS (4)
  - INTESTINAL OBSTRUCTION [None]
  - OVARIAN CANCER RECURRENT [None]
  - URINARY TRACT INFECTION [None]
  - ANAEMIA [None]
